FAERS Safety Report 9380475 (Version 1)
Quarter: 2013Q3

REPORT INFORMATION
  Report Type: Report from Study
  Country: US (occurrence: US)
  Receive Date: 20130702
  Receipt Date: 20130702
  Transmission Date: 20140515
  Serious: Yes (Hospitalization)
  Sender: FDA-Public Use
  Company Number: US-ACTELION-A-US2013-83284

PATIENT
  Age: 43 Year
  Sex: Female

DRUGS (5)
  1. VELETRI [Suspect]
     Indication: PULMONARY ARTERIAL HYPERTENSION
     Dosage: 29 NG/KG, PER MIN
     Route: 042
     Dates: start: 20121026
  2. VANCOMYCIN [Suspect]
  3. LETAIRIS [Concomitant]
  4. TYVASO [Concomitant]
  5. SILDENAFIL [Concomitant]

REACTIONS (8)
  - Bacteraemia [Unknown]
  - Device leakage [Unknown]
  - Device related infection [Unknown]
  - Pyrexia [Unknown]
  - Chills [Unknown]
  - Catheter placement [Unknown]
  - Catheter site pain [Unknown]
  - Adverse reaction [Unknown]
